FAERS Safety Report 7600435-X (Version None)
Quarter: 2011Q3

REPORT INFORMATION
  Report Type: 
  Country: None (occurrence: None)
  Receive Date: 20110711
  Receipt Date: 20110627
  Transmission Date: 20111222
  Serious: Yes (Other)
  Sender: FDA-Public Use
  Company Number: PHHY2011DE57052

PATIENT
  Age: 75 Year
  Sex: Male
  Weight: 68 kg

DRUGS (6)
  1. VALSARTAN [Suspect]
     Dosage: 2 DF (80MG), BID
     Route: 048
     Dates: start: 20080101, end: 20110601
  2. VALSARTAN [Interacting]
     Dosage: 2 DF (40MG), BID
     Route: 048
     Dates: start: 20110601
  3. FLECAINIDE ACETATE [Interacting]
     Route: 048
  4. JODTHYROX [Concomitant]
     Dosage: 1 DF, QD
     Route: 048
     Dates: start: 19910101
  5. DIGIMERCK [Concomitant]
     Dosage: 1 DF (0.1), QD
     Dates: start: 19710101, end: 20080101
  6. DIGIMERCK [Concomitant]
     Dosage: 1 DF (0.07), QD
     Route: 048
     Dates: start: 20080101

REACTIONS (9)
  - HEART RATE DECREASED [None]
  - MYALGIA [None]
  - ARRHYTHMIA [None]
  - ATRIAL FIBRILLATION [None]
  - BLOOD PRESSURE INCREASED [None]
  - DRUG INTERACTION [None]
  - HEART RATE INCREASED [None]
  - MUSCLE SPASMS [None]
  - FATIGUE [None]
